FAERS Safety Report 9383717 (Version 3)
Quarter: 2014Q1

REPORT INFORMATION
  Report Type: Spontaneous
  Country: AT (occurrence: AT)
  Receive Date: 20130704
  Receipt Date: 20140218
  Transmission Date: 20141002
  Serious: Yes (Hospitalization)
  Sender: FDA-Public Use
  Company Number: AT-ASTRAZENECA-2013SE40993

PATIENT
  Age: 56 Year
  Sex: Female

DRUGS (24)
  1. SEROQUEL [Suspect]
     Indication: MAJOR DEPRESSION
     Dosage: 25 MG IN THE MORNING, 25 MG AT NOON AND 50 MG AT NIGHT
     Route: 048
     Dates: start: 201301, end: 20130304
  2. DOMINAL FORTE [Suspect]
     Indication: INSOMNIA
     Route: 048
     Dates: start: 201301, end: 20130107
  3. DOMINAL FORTE [Suspect]
     Indication: INSOMNIA
     Route: 048
     Dates: start: 20130108, end: 20130305
  4. DOMINAL FORTE [Suspect]
     Indication: INSOMNIA
     Route: 048
     Dates: start: 20130306
  5. TRITTICO RETARD [Suspect]
     Indication: INSOMNIA
     Route: 048
     Dates: start: 20130107, end: 20130107
  6. TRITTICO RETARD [Suspect]
     Indication: INSOMNIA
     Route: 048
     Dates: start: 20130108
  7. LAMICTAL [Suspect]
     Indication: DEPRESSION
     Route: 048
     Dates: start: 20130108, end: 20130120
  8. LAMICTAL [Suspect]
     Indication: DEPRESSION
     Route: 048
     Dates: start: 20130121, end: 20130204
  9. LAMICTAL [Suspect]
     Indication: DEPRESSION
     Route: 048
     Dates: start: 20130205, end: 20130211
  10. LAMICTAL [Suspect]
     Indication: DEPRESSION
     Route: 048
     Dates: start: 20130212, end: 20130224
  11. LAMICTAL [Suspect]
     Indication: DEPRESSION
     Route: 048
     Dates: start: 20130121
  12. LAMICTAL [Suspect]
     Indication: DEPRESSION
     Route: 048
     Dates: start: 20130121
  13. CIPRALEX [Concomitant]
     Indication: DEPRESSION
     Route: 048
     Dates: start: 201212, end: 20130108
  14. CIPRALEX [Concomitant]
     Indication: DEPRESSION
     Route: 048
     Dates: start: 20130109
  15. RIVOTRIL [Concomitant]
     Indication: ANXIETY
     Route: 048
     Dates: start: 20130107, end: 20130107
  16. RIVOTRIL [Concomitant]
     Indication: ANXIETY
     Route: 048
     Dates: start: 20130108, end: 20130204
  17. RIVOTRIL [Concomitant]
     Indication: ANXIETY
     Route: 048
     Dates: start: 20130205, end: 20130211
  18. RIVOTRIL [Concomitant]
     Indication: ANXIETY
     Route: 048
     Dates: start: 20130212, end: 20130303
  19. RIVOTRIL [Concomitant]
     Indication: ANXIETY
     Route: 048
     Dates: start: 20130212, end: 20130303
  20. RIVOTRIL [Concomitant]
     Indication: ANXIETY
     Route: 048
     Dates: start: 20130221, end: 20130303
  21. RIVOTRIL [Concomitant]
     Indication: ANXIETY
     Route: 048
     Dates: start: 20130305
  22. EUTHYROX [Concomitant]
     Indication: THYROID DISORDER
     Route: 048
     Dates: start: 2009, end: 20130205
  23. EUTHYROX [Concomitant]
     Indication: THYROID DISORDER
     Route: 048
     Dates: start: 20130206
  24. COLDISTAN [Concomitant]
     Indication: NASAL DISORDER
     Dates: start: 201301

REACTIONS (3)
  - Leukopenia [Recovering/Resolving]
  - Neutropenia [Recovering/Resolving]
  - Blood cholesterol increased [Unknown]
